FAERS Safety Report 7295356-9 (Version None)
Quarter: 2011Q1

REPORT INFORMATION
  Report Type: 
  Country: None (occurrence: None)
  Receive Date: 20110216
  Receipt Date: 20110215
  Transmission Date: 20110831
  Serious: Yes (Other)
  Sender: FDA-Public Use
  Company Number: VE-PFIZER INC-2011033205

PATIENT
  Age: 53 Year
  Sex: Female

DRUGS (2)
  1. LIPITOR [Suspect]
     Indication: HYPERCHOLESTEROLAEMIA
     Dosage: 40 MG, 1X/DAY
     Route: 048
     Dates: start: 20101201, end: 20110211
  2. LIVIAL [Concomitant]
     Indication: HORMONE REPLACEMENT THERAPY
     Dosage: 2.5 MG, 1X/DAY
     Route: 048

REACTIONS (1)
  - UMBILICAL HERNIA REPAIR [None]
